FAERS Safety Report 5113376-7 (Version None)
Quarter: 2006Q3

REPORT INFORMATION
  Report Type: 
  Country: None (occurrence: None)
  Receive Date: 20060920
  Receipt Date: 20060905
  Transmission Date: 20061208
  Serious: Yes (Death, Life-Threatening, Hospitalization, Other)
  Sender: FDA-Public Use
  Company Number: 2005JP002100

PATIENT
  Age: 58 Year
  Sex: Male
  Weight: 54 kg

DRUGS (28)
  1. PROGRAF [Suspect]
     Indication: LUNG TRANSPLANT
     Dosage: SEE IMAGE
     Route: 048
     Dates: start: 20051011, end: 20051011
  2. PROGRAF [Suspect]
     Indication: LUNG TRANSPLANT
     Dosage: SEE IMAGE
     Route: 048
     Dates: start: 20051012, end: 20051012
  3. PROGRAF [Suspect]
     Indication: LUNG TRANSPLANT
     Dosage: SEE IMAGE
     Route: 048
     Dates: start: 20051013, end: 20051016
  4. PROGRAF [Suspect]
     Indication: LUNG TRANSPLANT
     Dosage: SEE IMAGE
     Route: 048
     Dates: start: 20051017, end: 20051019
  5. NEORAL (CICLOSPORIN) SUSPENSION [Suspect]
     Indication: LUNG TRANSPLANT
     Dosage: SEE IMAGE
     Route: 048
     Dates: start: 20050929, end: 20051010
  6. NEORAL (CICLOSPORIN) SUSPENSION [Suspect]
     Indication: LUNG TRANSPLANT
     Dosage: SEE IMAGE
     Route: 048
     Dates: start: 20051020, end: 20051021
  7. SANDIMMUNE [Suspect]
     Indication: LUNG TRANSPLANT
     Dosage: SEE IMAGE
     Dates: start: 20050823, end: 20050928
  8. SANDIMMUNE [Suspect]
     Indication: LUNG TRANSPLANT
     Dosage: SEE IMAGE
     Dates: start: 20051022, end: 20051102
  9. CELLCEPT [Suspect]
     Indication: LUNG TRANSPLANT
     Dosage: SEE IMAGE
     Route: 048
     Dates: start: 20050830, end: 20050918
  10. CELLCEPT [Suspect]
     Indication: LUNG TRANSPLANT
     Dosage: SEE IMAGE
     Route: 048
     Dates: start: 20050919, end: 20051016
  11. CELLCEPT [Suspect]
     Indication: LUNG TRANSPLANT
     Dosage: SEE IMAGE
     Route: 048
     Dates: start: 20051017, end: 20060204
  12. PREDONINE (PREDNISOLONE) GRANULE [Suspect]
     Indication: LUNG TRANSPLANT
     Dosage: 25 MG, UID/QD, ORAL
     Route: 048
     Dates: start: 20051001, end: 20060204
  13. NEO-MINOPHAGEN (GLYCYRRHIZIC ACID, AMMONIUM SALT) INJECTION [Suspect]
     Dosage: 40 ML, UID/QD, IV NOS
     Route: 042
     Dates: start: 20050916, end: 20060204
  14. TOBRACIN (TOBRAMYCIN SULFATE) INJECTION [Suspect]
     Indication: PROPHYLAXIS
     Dosage: 180 MG, IV NOS
     Route: 042
     Dates: start: 20050822, end: 20050828
  15. CEFTAZIDIME [Suspect]
     Indication: PROPHYLAXIS
     Dosage: 2 G, IV NOS
     Route: 042
     Dates: start: 20050822, end: 20050930
  16. GASTER (FAMOTIDINE) INJECTION [Suspect]
     Indication: PROPHYLAXIS
     Dosage: 20 MG, IV NOS
     Route: 042
     Dates: start: 20050822, end: 20050930
  17. LASIX /SWE/ (FUROSEMIDE) INJECTION [Concomitant]
  18. INOVAN (DOPAMINE HYDROCHLORIDE) INJECTION [Concomitant]
  19. HUMULIN R (INSULIN HUMAN) INJECTION [Concomitant]
  20. DIFLUCAN (FLUCONAZOLE) PER ORAL NOS [Concomitant]
  21. NYSTATIN (NYSTATIN) PER ORAL NOS [Concomitant]
  22. SELBEX (TEPRENONE) FINE GRANULE [Concomitant]
  23. URSO (URSODEOXYCHOLIC ACID) FINE GRANULE [Concomitant]
  24. GASTER POWDER [Concomitant]
  25. PROPOFOL (PROPOFOL) INJECTION [Concomitant]
  26. DENOSINE (GANCICLOVIR) INJECTION [Concomitant]
  27. METHYLPREDNISOLONE (METHYLPREDISOLONE) INJECTION [Concomitant]
  28. IMURAN [Concomitant]

REACTIONS (14)
  - BLOOD LACTATE DEHYDROGENASE DECREASED [None]
  - BRAIN OEDEMA [None]
  - CONDITION AGGRAVATED [None]
  - HAEMODIALYSIS [None]
  - HAEMOLYTIC ANAEMIA [None]
  - HEPATIC FUNCTION ABNORMAL [None]
  - IMMUNOSUPPRESSANT DRUG LEVEL DECREASED [None]
  - LEUKOENCEPHALOPATHY [None]
  - MULTI-ORGAN FAILURE [None]
  - PLATELET COUNT DECREASED [None]
  - RENAL DISORDER [None]
  - RENAL IMPAIRMENT [None]
  - SEPSIS [None]
  - THROMBOTIC MICROANGIOPATHY [None]
